FAERS Safety Report 17171982 (Version 1)
Quarter: 2019Q4

REPORT INFORMATION
  Report Type: Spontaneous
  Country: MY (occurrence: MY)
  Receive Date: 20191219
  Receipt Date: 20191219
  Transmission Date: 20200122
  Serious: Yes (Other)
  Sender: FDA-Public Use
  Company Number: MY-PFIZER INC-2019544306

PATIENT
  Age: 79 Year
  Sex: Female

DRUGS (1)
  1. TAZOCIN [Suspect]
     Active Substance: PIPERACILLIN SODIUM\TAZOBACTAM SODIUM
     Indication: WOUND INFECTION
     Dosage: 4.5 G, 4X/DAY
     Route: 042

REACTIONS (4)
  - Erythema [Unknown]
  - Rash maculo-papular [Unknown]
  - Skin erosion [Unknown]
  - Blister [Unknown]
